FAERS Safety Report 12658151 (Version 1)
Quarter: 2016Q3

REPORT INFORMATION
  Report Type: Spontaneous
  Country: US (occurrence: US)
  Receive Date: 20160817
  Receipt Date: 20160817
  Transmission Date: 20161109
  Serious: No
  Sender: FDA-Public Use
  Company Number: US-BEH-2016072159

PATIENT
  Sex: Female
  Weight: 79.82 kg

DRUGS (22)
  1. COMBIVENT [Concomitant]
     Active Substance: ALBUTEROL SULFATE\IPRATROPIUM BROMIDE
  2. ZOVIRAX [Concomitant]
     Active Substance: ACYCLOVIR
  3. OXYBUTYNIN [Concomitant]
     Active Substance: OXYBUTYNIN
  4. NYSTATIN. [Concomitant]
     Active Substance: NYSTATIN
  5. ACETAMINOPHEN. [Concomitant]
     Active Substance: ACETAMINOPHEN
  6. DIPHENHYDRAMINE. [Concomitant]
     Active Substance: DIPHENHYDRAMINE
  7. MONTELUKAST [Concomitant]
     Active Substance: MONTELUKAST SODIUM
  8. LYRICA [Concomitant]
     Active Substance: PREGABALIN
  9. SYMBICORT [Concomitant]
     Active Substance: BUDESONIDE\FORMOTEROL FUMARATE DIHYDRATE
  10. ESTRADIOL. [Concomitant]
     Active Substance: ESTRADIOL
  11. HIZENTRA [Suspect]
     Active Substance: HUMAN IMMUNOGLOBULIN G
     Indication: IMMUNODEFICIENCY COMMON VARIABLE
     Dosage: 8 G, QW
     Route: 058
     Dates: start: 20160331
  12. PREDNISONE. [Concomitant]
     Active Substance: PREDNISONE
  13. DULOXETINE. [Concomitant]
     Active Substance: DULOXETINE
  14. OXYGEN. [Concomitant]
     Active Substance: OXYGEN
  15. AZELASTINE [Concomitant]
     Active Substance: AZELASTINE
  16. FORADIL [Concomitant]
     Active Substance: FORMOTEROL FUMARATE
  17. NEXIUM [Concomitant]
     Active Substance: ESOMEPRAZOLE MAGNESIUM
  18. BENADRYL [Concomitant]
     Active Substance: DIPHENHYDRAMINE HYDROCHLORIDE
     Indication: PREMEDICATION
  19. VALACYCLOVIR [Concomitant]
     Active Substance: VALACYCLOVIR HYDROCHLORIDE
  20. CLONAZEPAM. [Concomitant]
     Active Substance: CLONAZEPAM
  21. LEVOCETIRIZINE [Concomitant]
     Active Substance: LEVOCETIRIZINE
  22. EPIPEN [Concomitant]
     Active Substance: EPINEPHRINE

REACTIONS (1)
  - Injection site rash [Unknown]
